FAERS Safety Report 10380339 (Version 7)
Quarter: 2021Q4

REPORT INFORMATION
  Report Type: Report from Study
  Country: IL (occurrence: IL)
  Receive Date: 20140813
  Receipt Date: 20211225
  Transmission Date: 20220303
  Serious: Yes (Hospitalization, Other)
  Sender: FDA-Public Use
  Company Number: IL-SHIRE-IL201404868

PATIENT
  Age: 87 Year
  Sex: Male
  Weight: 68.934 kg

DRUGS (4)
  1. VELAGLUCERASE ALFA [Suspect]
     Active Substance: VELAGLUCERASE ALFA
     Indication: Gaucher^s disease
     Dosage: 60 IU/KG, 1X/2WKS
     Route: 041
     Dates: start: 20111115
  2. VELAGLUCERASE ALFA [Suspect]
     Active Substance: VELAGLUCERASE ALFA
     Dosage: 15 IU/KG, 1X/2WKS
     Route: 041
     Dates: start: 20091124, end: 20110401
  3. VELAGLUCERASE ALFA [Suspect]
     Active Substance: VELAGLUCERASE ALFA
     Dosage: 30 IU/KG, 1X/2WKS
     Route: 041
     Dates: start: 20110421, end: 20111109
  4. VELAGLUCERASE ALFA [Suspect]
     Active Substance: VELAGLUCERASE ALFA
     Dosage: 60 INTERNATIONAL UNIT/KILOGRAM, Q2WEEKS
     Route: 065
     Dates: start: 20111115, end: 20191008

REACTIONS (4)
  - Klebsiella infection [Recovered/Resolved]
  - Urosepsis [Recovered/Resolved]
  - Duodenal ulcer haemorrhage [Recovered/Resolved]
  - Bacteraemia [Recovered/Resolved]

NARRATIVE: CASE EVENT DATE: 20140730
